FAERS Safety Report 5648125-7 (Version None)
Quarter: 2008Q1

REPORT INFORMATION
  Report Type: 
  Country: None (occurrence: None)
  Receive Date: 20080304
  Receipt Date: 20080222
  Transmission Date: 20080703
  Serious: Yes (Hospitalization)
  Sender: FDA-Public Use
  Company Number: US-JNJFOC-20080205940

PATIENT
  Sex: Female
  Weight: 61.24 kg

DRUGS (6)
  1. FENTANYL TRANSDERMAL SYSTEM [Suspect]
     Indication: PAIN
     Route: 062
  2. BENICAR HCT [Concomitant]
     Indication: HYPERTENSION
     Route: 048
  3. COREG [Concomitant]
     Indication: HYPERTENSION
     Route: 048
  4. HYDRALAZINE HCL [Concomitant]
     Indication: HYPERTENSION
     Route: 048
  5. PRAVASTATIN [Concomitant]
     Indication: HYPERTENSION
     Route: 048
  6. MECLIZINE [Concomitant]
     Indication: DIZZINESS
     Route: 048

REACTIONS (4)
  - BLOOD URINE PRESENT [None]
  - CONFUSIONAL STATE [None]
  - DIZZINESS [None]
  - LOSS OF CONSCIOUSNESS [None]
